FAERS Safety Report 4774587-3 (Version None)
Quarter: 2005Q3

REPORT INFORMATION
  Report Type: 
  Country: None (occurrence: None)
  Receive Date: 20050919
  Receipt Date: 20050906
  Transmission Date: 20060218
  Serious: Yes (Other)
  Sender: FDA-Public Use
  Company Number: 217514

PATIENT
  Age: 34 Year
  Sex: Male
  Weight: 75 kg

DRUGS (14)
  1. RITUXAN [Suspect]
     Indication: NON-HODGKIN'S LYMPHOMA
     Dosage: 680 MG, INTRAVENOUS
     Route: 042
     Dates: start: 20041115, end: 20050112
  2. CYCLOPHOSPHAMIDE [Suspect]
     Indication: NON-HODGKIN'S LYMPHOMA
     Dosage: 1360 MG, INTRAVENOUS
     Route: 042
     Dates: start: 20040930, end: 20050121
  3. ADRIAMYCIN PFS [Suspect]
     Indication: NON-HODGKIN'S LYMPHOMA
     Dosage: 90 MG, INTRAVENOUS
     Route: 042
     Dates: start: 20040930, end: 20050121
  4. ONCOVIN [Suspect]
     Indication: NON-HODGKIN'S LYMPHOMA
     Dosage: INTRAVENOUS
     Route: 042
     Dates: start: 20040930, end: 20050121
  5. CEFEPIME (CEFEPIME) [Concomitant]
  6. MINOCYCLINE HCL [Concomitant]
  7. MEROPENEM (MEROPENEM) [Concomitant]
  8. BRUFEN (IBUPROFEN) [Concomitant]
  9. POLARAMINE [Concomitant]
  10. ZEFFIX (LAMIVUDINE) [Concomitant]
  11. URSODIOL [Concomitant]
  12. LANSOPRAZOLE [Concomitant]
  13. MAGNESIUM OXIDE (MAGNESIUM OXIDE) [Concomitant]
  14. OXYCONTIN (OXYCODONE HYDROCHLOLRIDE) [Concomitant]

REACTIONS (3)
  - NEUTROPENIA [None]
  - PYREXIA [None]
  - WHITE BLOOD CELL COUNT DECREASED [None]
